FAERS Safety Report 11771933 (Version 2)
Quarter: 2015Q4

REPORT INFORMATION
  Report Type: Spontaneous
  Country: NL (occurrence: NL)
  Receive Date: 20151124
  Receipt Date: 20151204
  Transmission Date: 20160304
  Serious: Yes (Other)
  Sender: FDA-Public Use
  Company Number: NL-ACTAVIS-2015-25222

PATIENT
  Age: 58 Year
  Sex: Female

DRUGS (1)
  1. TRAMADOL HCL ACTAVIS [Suspect]
     Active Substance: TRAMADOL HYDROCHLORIDE
     Indication: PRODUCT USED FOR UNKNOWN INDICATION
     Dosage: 3 DF, DAILY
     Route: 065

REACTIONS (2)
  - Hallucination [Unknown]
  - Circumstance or information capable of leading to medication error [Unknown]
